FAERS Safety Report 13553346 (Version 4)
Quarter: 2018Q3

REPORT INFORMATION
  Report Type: Spontaneous
  Country: CA (occurrence: CA)
  Receive Date: 20170517
  Receipt Date: 20180724
  Transmission Date: 20181010
  Serious: Yes (Other)
  Sender: FDA-Public Use
  Company Number: CA-ROCHE-1936246

PATIENT
  Age: 64 Year
  Sex: Female

DRUGS (2)
  1. XOLAIR [Suspect]
     Active Substance: OMALIZUMAB
     Indication: ASTHMA
     Route: 058
     Dates: start: 20130115
  2. XOLAIR [Suspect]
     Active Substance: OMALIZUMAB
     Route: 058
     Dates: start: 20130115

REACTIONS (5)
  - Forced expiratory volume decreased [Unknown]
  - Bronchitis [Unknown]
  - Dyspnoea [Unknown]
  - Weight increased [Unknown]
  - Influenza [Unknown]

NARRATIVE: CASE EVENT DATE: 20170510
